FAERS Safety Report 13123573 (Version 3)
Quarter: 2017Q1

REPORT INFORMATION
  Report Type: Spontaneous
  Country: FR (occurrence: FR)
  Receive Date: 20170117
  Receipt Date: 20170127
  Transmission Date: 20170428
  Serious: Yes (Other)
  Sender: FDA-Public Use
  Company Number: FR-BEH-2017077212

PATIENT
  Age: 50 Year
  Sex: Male

DRUGS (17)
  1. PRIVIGEN [Suspect]
     Active Substance: HUMAN IMMUNOGLOBULIN G
     Indication: TRANSPLANT REJECTION
     Dosage: 40 G (400 ML), QD
     Route: 042
     Dates: start: 20170108, end: 20170108
  2. ADOPORT [Concomitant]
     Active Substance: TACROLIMUS
     Dosage: 2.5 MG, BID
     Route: 048
  3. BROMAZEPAM [Concomitant]
     Active Substance: BROMAZEPAM
     Dosage: 1.5 MG, BID
     Route: 048
  4. FUNGIZONE [Concomitant]
     Active Substance: AMPHOTERICIN B
     Dosage: 500 MG, TID
     Route: 048
  5. ROVALCYTE [Concomitant]
     Active Substance: VALGANCICLOVIR HYDROCHLORIDE
     Dosage: 2 DF, QD
     Route: 048
  6. SOLUPRED                           /00016201/ [Concomitant]
     Active Substance: PREDNISOLONE
     Dosage: 40 MG, QD
     Route: 048
  7. CELLCEPT [Concomitant]
     Active Substance: MYCOPHENOLATE MOFETIL\MYCOPHENOLATE MOFETIL HYDROCHLORIDE
     Dosage: 1 G, BID
     Route: 048
  8. ALPRAZOLAM. [Concomitant]
     Active Substance: ALPRAZOLAM
     Dosage: 0.5 MG, QD
     Route: 048
  9. OROZAMUDOL [Concomitant]
     Active Substance: TRAMADOL
     Dosage: 50 MG, PRN
     Route: 048
  10. NICOPATCH [Concomitant]
     Active Substance: NICOTINE
     Dosage: 1 DF, QD
     Route: 062
  11. PRIVIGEN [Suspect]
     Active Substance: HUMAN IMMUNOGLOBULIN G
     Indication: KIDNEY TRANSPLANT REJECTION
     Dosage: 80 G (800 ML), QD
     Route: 042
     Dates: start: 20170107, end: 20170107
  12. RESIKALI [Concomitant]
     Active Substance: CALCIUM POLYSTYRENE SULFONATE
     Dosage: 1 DF, BID
     Route: 048
  13. BACTRIM [Concomitant]
     Active Substance: SULFAMETHOXAZOLE\TRIMETHOPRIM
     Dosage: 1 DF, QD
     Route: 048
  14. AMLODIPINE [Concomitant]
     Active Substance: AMLODIPINE BESYLATE
     Dosage: 5 MG, BID
     Route: 048
  15. EUPRESSYL                          /00631801/ [Concomitant]
     Active Substance: URAPIDIL
     Dosage: 60 MG, BID
     Route: 048
  16. SECTRAL [Concomitant]
     Active Substance: ACEBUTOLOL HYDROCHLORIDE
     Dosage: 200 MG, BID
     Route: 048
  17. PANTOPRAZOLE [Concomitant]
     Active Substance: PANTOPRAZOLE SODIUM
     Dosage: 40 MG, QD
     Route: 048

REACTIONS (5)
  - Tachycardia [Recovering/Resolving]
  - Hypoxia [Recovering/Resolving]
  - Respiratory distress [Recovering/Resolving]
  - Transfusion-related acute lung injury [Recovering/Resolving]
  - Dyspnoea [Recovering/Resolving]

NARRATIVE: CASE EVENT DATE: 20170107
